FAERS Safety Report 8170978-1 (Version None)
Quarter: 2012Q1

REPORT INFORMATION
  Report Type: 
  Country: None (occurrence: None)
  Receive Date: 20120228
  Receipt Date: 20120223
  Transmission Date: 20120608
  Serious: Yes (Other)
  Sender: FDA-Public Use
  Company Number: US-PFIZER INC-2012038086

PATIENT
  Sex: Female
  Weight: 129 kg

DRUGS (18)
  1. XANAX [Concomitant]
     Indication: ANXIETY
     Dosage: 2 MG, 2X/DAY
  2. CALCIUM [Concomitant]
     Indication: MENOPAUSAL SYMPTOMS
     Dosage: 1200 MG, UNK
  3. WELLBUTRIN XL [Concomitant]
     Indication: DEPRESSION
     Dosage: 300 MG,DAILY
  4. ALBUTEROL [Concomitant]
     Indication: CHRONIC OBSTRUCTIVE PULMONARY DISEASE
     Dosage: 2X/DAY
  5. SYMBICORT [Concomitant]
     Indication: CHRONIC OBSTRUCTIVE PULMONARY DISEASE
     Dosage: UNK, 2X/DAY
  6. TRAMADOL [Concomitant]
     Indication: PAIN
     Dosage: 50 MG, 2X/DAY
  7. HYDROCHLOROTHIAZIDE [Concomitant]
     Indication: HYPERTENSION
     Dosage: 25 MG,DAILY
  8. LEXAPRO [Concomitant]
     Indication: DEPRESSION
     Dosage: 20 MG,DAILY
  9. DIOVAN [Concomitant]
     Indication: HYPERTENSION
     Dosage: 160 MG,DAILY
  10. ACETYLSALICYLIC ACID [Concomitant]
     Indication: CARDIAC DISORDER
     Dosage: 81 MG, UNK
  11. TRILIPIX [Concomitant]
     Indication: BLOOD TRIGLYCERIDES INCREASED
     Dosage: 135 MG,DAILY
  12. LIPITOR [Concomitant]
     Indication: BLOOD CHOLESTEROL INCREASED
     Dosage: 20 MG,DAILY
  13. OMEPRAZOLE [Concomitant]
     Indication: GASTROOESOPHAGEAL REFLUX DISEASE
     Dosage: 20 MG IN THE MORNING AND 40MG AT BED TIME
  14. METFORMIN [Concomitant]
     Indication: DIABETES MELLITUS
     Dosage: 500 MG,DAILY
  15. VITAMIN D [Concomitant]
     Indication: VITAMIN D DECREASED
     Dosage: 4400 IU,DAILY
  16. LYRICA [Suspect]
     Indication: FIBROMYALGIA
     Dosage: 75 MG, 2X/DAY
     Dates: start: 20111201
  17. LEVOTHYROXINE [Concomitant]
     Indication: HYPOTHYROIDISM
     Dosage: 125 UG,DAILY
  18. ASCORBIC ACID [Concomitant]
     Indication: GINGIVAL BLEEDING
     Dosage: 1000 MG, UNK

REACTIONS (3)
  - DIABETES MELLITUS [None]
  - OEDEMA PERIPHERAL [None]
  - FIBROMYALGIA [None]
